FAERS Safety Report 9746406 (Version 1)
Quarter: 2013Q4

REPORT INFORMATION
  Report Type: Spontaneous
  Country: SE (occurrence: SE)
  Receive Date: 20131211
  Receipt Date: 20131211
  Transmission Date: 20140711
  Serious: Yes (Disabling)
  Sender: FDA-Public Use
  Company Number: SE-GLAXOSMITHKLINE-B0941348A

PATIENT
  Sex: Male

DRUGS (4)
  1. SEROXAT [Suspect]
     Indication: PANIC DISORDER
     Route: 065
  2. ETHANOL [Suspect]
     Indication: PRODUCT USED FOR UNKNOWN INDICATION
     Route: 048
  3. BUSPAR [Concomitant]
     Indication: ANXIETY
  4. STESOLID [Concomitant]
     Indication: ANXIETY
     Dosage: 5MG AS REQUIRED
     Dates: start: 2007

REACTIONS (11)
  - Aggression [Recovered/Resolved]
  - Crime [Recovered/Resolved]
  - Personality change [Not Recovered/Not Resolved]
  - Aggression [Unknown]
  - Emotional disorder [Unknown]
  - Impulsive behaviour [Unknown]
  - Abnormal behaviour [Unknown]
  - Suicidal ideation [Unknown]
  - Suicide attempt [Unknown]
  - Decreased interest [Unknown]
  - Sexual dysfunction [Unknown]
